FAERS Safety Report 23850182 (Version 1)
Quarter: 2024Q2

REPORT INFORMATION
  Report Type: Spontaneous
  Country: SE (occurrence: SE)
  Receive Date: 20240513
  Receipt Date: 20240513
  Transmission Date: 20240716
  Serious: Yes (Hospitalization, Other)
  Sender: FDA-Public Use
  Company Number: None

PATIENT
  Age: 48 Year
  Sex: Male

DRUGS (14)
  1. PREGABALIN [Suspect]
     Active Substance: PREGABALIN
     Indication: Neuralgia
     Dosage: 600 MILLIGRAM, QD, 600 MG PER DAY
     Route: 048
  2. SODIUM PICOSULFATE [Concomitant]
     Active Substance: SODIUM PICOSULFATE
     Dosage: 20 GTT DROPS, PRN, AS NECESSARY
     Route: 048
  3. ACETAMINOPHEN [Concomitant]
     Active Substance: ACETAMINOPHEN
     Dosage: 1000 MILLIGRAM, Q8H, 2X3
     Route: 048
  4. PROPIOMAZINE [Concomitant]
     Active Substance: PROPIOMAZINE
     Dosage: 25 MILLIGRAM, QD, 0+0+1
     Route: 048
  5. BRINTELLIX [Concomitant]
     Active Substance: VORTIOXETINE HYDROBROMIDE
     Dosage: 20 MILLIGRAM, QD, 2X1
     Route: 048
  6. BACLOFEN [Concomitant]
     Active Substance: BACLOFEN
     Dosage: 15 MILLIGRAM, Q8H, 1.5 X3
     Route: 048
  7. Microlax [Concomitant]
     Dosage: 1 DOSAGE FORM, QD, 1X1
     Route: 054
  8. DENTAN MINT [Concomitant]
     Dosage: 10 MILLIGRAM, PRN, AS NECESSARY
     Route: 048
  9. Dulcolax [Concomitant]
     Dosage: 10 MILLIGRAM, PRN, AS NECESSARY
     Route: 054
  10. Mecastrin [Concomitant]
     Dosage: 2 MILLIGRAM, QD, 0+0+1
     Route: 048
  11. KALIUMKLORID ORIFARM [Concomitant]
     Dosage: 750 MILLIGRAM, QD, 1X1
     Route: 048
  12. MIRTAZAPINE [Concomitant]
     Active Substance: MIRTAZAPINE
     Dosage: 7.5 MILLIGRAM, QD, 0+0+0,5
     Route: 048
  13. ZOPICLONE [Concomitant]
     Active Substance: ZOPICLONE
     Dosage: 5 MILLIGRAM, QD, 1 AT NIGHT
     Route: 048
  14. HYDROCORTISONE\MICONAZOLE NITRATE [Concomitant]
     Active Substance: HYDROCORTISONE\MICONAZOLE NITRATE
     Dosage: BID, 1X2
     Route: 061

REACTIONS (16)
  - Cardiac arrest [Recovered/Resolved]
  - Respiratory depression [Unknown]
  - Ventricular fibrillation [Unknown]
  - Cardiac pacemaker insertion [Unknown]
  - Brugada syndrome [Unknown]
  - Mental fatigue [Unknown]
  - Spinal cord injury [Unknown]
  - Irritability [Unknown]
  - Burning sensation [Unknown]
  - Anxiety [Unknown]
  - Loss of consciousness [Unknown]
  - Tremor [Unknown]
  - Constipation [Unknown]
  - Depression [Unknown]
  - Muscle spasms [Unknown]
  - Somnolence [Recovered/Resolved]
